FAERS Safety Report 5913896-9 (Version None)
Quarter: 2008Q4

REPORT INFORMATION
  Report Type: 
  Country: None (occurrence: None)
  Receive Date: 20081009
  Receipt Date: 20080929
  Transmission Date: 20090506
  Serious: Yes (Hospitalization)
  Sender: FDA-Public Use
  Company Number: B0539121A

PATIENT
  Age: 72 Year
  Sex: Male

DRUGS (7)
  1. AUGMENTIN '125' [Suspect]
     Indication: ERYSIPELAS
     Route: 048
     Dates: start: 20080313, end: 20080314
  2. PENICILLIN G [Suspect]
     Indication: ERYSIPELAS
     Dosage: 4MU FIVE TIMES PER DAY
     Route: 042
     Dates: start: 20080314, end: 20080315
  3. GAVISCON [Suspect]
     Indication: DRUG USE FOR UNKNOWN INDICATION
     Route: 048
     Dates: start: 20080313, end: 20080315
  4. OSMOTAN [Suspect]
     Indication: DRUG USE FOR UNKNOWN INDICATION
     Dosage: 1L TWICE PER DAY
     Route: 042
     Dates: start: 20080313, end: 20080315
  5. ACETAMINOPHEN [Concomitant]
     Indication: DRUG USE FOR UNKNOWN INDICATION
     Route: 048
     Dates: start: 20080313, end: 20080315
  6. DALACINE [Concomitant]
     Indication: ERYSIPELAS
     Route: 048
     Dates: start: 20080314
  7. IMOVANE [Concomitant]
     Indication: INSOMNIA
     Route: 048
     Dates: start: 20080313

REACTIONS (10)
  - BLOOD CREATININE INCREASED [None]
  - BLOOD UREA INCREASED [None]
  - ERYSIPELAS [None]
  - ERYTHEMA [None]
  - GENERAL PHYSICAL HEALTH DETERIORATION [None]
  - INFLAMMATION [None]
  - LEUKOCYTOSIS [None]
  - LYMPHADENOPATHY [None]
  - RASH PUSTULAR [None]
  - RASH SCARLATINIFORM [None]
